FAERS Safety Report 9456139 (Version 1)
Quarter: 2013Q3

REPORT INFORMATION
  Report Type: Spontaneous
  Country: SE (occurrence: SE)
  Receive Date: 20130813
  Receipt Date: 20130813
  Transmission Date: 20140515
  Serious: Yes (Other)
  Sender: FDA-Public Use
  Company Number: SE-WATSON-2013-14519

PATIENT
  Sex: Male

DRUGS (1)
  1. SIMVASTATIN (UNKNOWN) [Suspect]
     Indication: PRODUCT USED FOR UNKNOWN INDICATION
     Dosage: UNK, UNKNOWN
     Route: 065

REACTIONS (4)
  - Erectile dysfunction [Unknown]
  - Myalgia [Unknown]
  - Mobility decreased [Unknown]
  - Withdrawal syndrome [Unknown]
